FAERS Safety Report 9609272 (Version 2)
Quarter: 2013Q4

REPORT INFORMATION
  Report Type: Spontaneous
  Country: US (occurrence: US)
  Receive Date: 20131009
  Receipt Date: 20131009
  Transmission Date: 20140711
  Serious: No
  Sender: FDA-Public Use
  Company Number: US-PURDUE-USA-2012-0094404

PATIENT
  Age: 39 Year
  Sex: Female
  Weight: 56.24 kg

DRUGS (4)
  1. BUTRANS [Suspect]
     Indication: PAIN
     Dosage: 5 MCG, UNK
     Route: 062
     Dates: start: 20120813
  2. BUTRANS [Suspect]
     Dosage: 10 MCG, UNK
     Route: 062
  3. SAVELLA [Concomitant]
     Indication: FIBROMYALGIA
     Dosage: 100 MG, BID
     Route: 048
     Dates: start: 2011
  4. PREDNISONE [Concomitant]
     Indication: PAIN
     Dosage: 60MG X 3 DAYS, 50MG X 3 DAYS, 40MG X 3 DAYS, 20MG X 3 DAYS
     Route: 048
     Dates: start: 20120813, end: 20120828

REACTIONS (5)
  - Dizziness [Recovered/Resolved]
  - Vertigo [Recovered/Resolved]
  - Cold sweat [Recovered/Resolved]
  - Pyrexia [Recovered/Resolved]
  - Nausea [Recovered/Resolved]
